FAERS Safety Report 24715269 (Version 1)
Quarter: 2024Q4

REPORT INFORMATION
  Report Type: Report from Study
  Country: US (occurrence: US)
  Receive Date: 20241210
  Receipt Date: 20241210
  Transmission Date: 20250115
  Serious: Yes (Other)
  Sender: UCB
  Company Number: US-UCBSA-2024003174

PATIENT
  Sex: Female

DRUGS (7)
  1. LACOSAMIDE [Suspect]
     Active Substance: LACOSAMIDE
     Indication: Seizure
     Dosage: 100 MG 1 TAB IN AM 1.5 TAB IN PM
  2. LACOSAMIDE [Suspect]
     Active Substance: LACOSAMIDE
     Dosage: 100MG 1 TABLET IN AM AND 0.5 TABLET AT PM
  3. LACOSAMIDE [Suspect]
     Active Substance: LACOSAMIDE
     Dosage: CHANGED FROM 100MG TO 50MG AND 150MG TO 75MG
  4. LACOSAMIDE [Suspect]
     Active Substance: LACOSAMIDE
     Dosage: 100 MILLIGRAM, 2X/DAY (BID)
  5. LACOSAMIDE [Suspect]
     Active Substance: LACOSAMIDE
     Dosage: OVERDOSE
  6. LACOSAMIDE [Suspect]
     Active Substance: LACOSAMIDE
     Dosage: 50 MILLIGRAM, 2X/DAY (BID)
  7. KEPPRA [Suspect]
     Active Substance: LEVETIRACETAM
     Indication: Product used for unknown indication
     Dosage: 500 MILLIGRAM

REACTIONS (11)
  - Fall [Unknown]
  - Injury [Unknown]
  - Bronchitis [Recovered/Resolved]
  - Dizziness [Recovered/Resolved]
  - Full blood count increased [Unknown]
  - Balance disorder [Unknown]
  - Product use issue [Unknown]
  - Wrong technique in product usage process [Unknown]
  - Intentional product use issue [Unknown]
  - Treatment noncompliance [Unknown]
  - Overdose [Unknown]
